FAERS Safety Report 6407665-3 (Version None)
Quarter: 2009Q4

REPORT INFORMATION
  Report Type: 
  Country: None (occurrence: None)
  Receive Date: 20091020
  Receipt Date: 20091009
  Transmission Date: 20100525
  Serious: Yes (Other)
  Sender: FDA-Public Use
  Company Number: PHHY2009AR43762

PATIENT
  Sex: Female

DRUGS (5)
  1. EXELON [Suspect]
     Indication: DEMENTIA ALZHEIMER'S TYPE
     Dosage: 5 CM, ONE PATCH DAILY
     Dates: start: 20081201, end: 20090401
  2. EXELON [Suspect]
     Dosage: 10 CM, 1 PATCH DAILY
     Dates: start: 20090401, end: 20090618
  3. EXELON [Suspect]
     Dosage: 5 CM
  4. MEMANTINE HCL [Concomitant]
     Dosage: 20 MG
  5. MELATONIN [Concomitant]
     Dosage: EVERY NIGHT

REACTIONS (3)
  - HYPERTENSION [None]
  - NAUSEA [None]
  - VOMITING [None]
